FAERS Safety Report 25001710 (Version 1)
Quarter: 2025Q1

REPORT INFORMATION
  Report Type: Report from Study
  Country: US (occurrence: US)
  Receive Date: 20250223
  Receipt Date: 20250223
  Transmission Date: 20250409
  Serious: Yes (Hospitalization)
  Sender: JOHNSON AND JOHNSON
  Company Number: US-JNJFOC-20250255215

PATIENT
  Age: 54 Year
  Sex: Male
  Weight: 121.109 kg

DRUGS (4)
  1. VELETRI [Suspect]
     Active Substance: EPOPROSTENOL
     Indication: Pulmonary hypertension
     Dosage: VELETRI 1.5MG VIAL INTRAVENOUS
     Route: 042
  2. OPSUMIT [Concomitant]
     Active Substance: MACITENTAN
  3. XARELTO [Concomitant]
     Active Substance: RIVAROXABAN
  4. TADALAFIL [Concomitant]
     Active Substance: TADALAFIL

REACTIONS (2)
  - Device occlusion [Unknown]
  - Underdose [Unknown]

NARRATIVE: CASE EVENT DATE: 20250101
